FAERS Safety Report 12872420 (Version 1)
Quarter: 2016Q4

REPORT INFORMATION
  Report Type: Report from Study
  Country: US (occurrence: US)
  Receive Date: 20161021
  Receipt Date: 20161021
  Transmission Date: 20170207
  Serious: Yes (Other)
  Sender: FDA-Public Use
  Company Number: US-AMGEN-USASL2016143210

PATIENT
  Age: 29 Year

DRUGS (1)
  1. ENBREL [Suspect]
     Active Substance: ETANERCEPT
     Indication: PSORIASIS
     Dosage: 50 MG, QWK
     Route: 065

REACTIONS (9)
  - Injection site swelling [Unknown]
  - Injection site pruritus [Unknown]
  - Injection site erythema [Unknown]
  - Drug dose omission [Unknown]
  - Pneumonia [Unknown]
  - Injection site pain [Unknown]
  - Bronchitis [Unknown]
  - Pharyngitis streptococcal [Unknown]
  - Injection site nodule [Unknown]

NARRATIVE: CASE EVENT DATE: 201604
